FAERS Safety Report 20976319 (Version 2)
Quarter: 2022Q3

REPORT INFORMATION
  Report Type: Spontaneous
  Country: IT (occurrence: IT)
  Receive Date: 20220617
  Receipt Date: 20220714
  Transmission Date: 20221027
  Serious: Yes (Life-Threatening, Other)
  Sender: FDA-Public Use
  Company Number: None

PATIENT
  Age: 1 Month
  Sex: Male
  Weight: 1 kg

DRUGS (6)
  1. FENTANYL CITRATE [Suspect]
     Active Substance: FENTANYL CITRATE
     Indication: Light anaesthesia
     Dosage: 14 UG, TOTAL
     Route: 042
     Dates: start: 20220603, end: 20220603
  2. ROCURONIUM BROMIDE [Suspect]
     Active Substance: ROCURONIUM BROMIDE
     Indication: Neuromuscular blocking therapy
     Dosage: 2 MG, TOTAL
     Route: 042
     Dates: start: 20220603, end: 20220603
  3. PROPOFOL [Suspect]
     Active Substance: PROPOFOL
     Indication: Sedative therapy
     Dosage: 5 MG,TOTAL
     Route: 042
     Dates: start: 20220603, end: 20220603
  4. PROPOFOL [Suspect]
     Active Substance: PROPOFOL
     Indication: Sedative therapy
  5. ACETAMINOPHEN [Concomitant]
     Active Substance: ACETAMINOPHEN
     Dates: start: 20220428, end: 20220603
  6. ACETAMINOPHEN [Concomitant]
     Active Substance: ACETAMINOPHEN
     Dates: start: 20220428, end: 20220603

REACTIONS (6)
  - Acute respiratory distress syndrome [Recovering/Resolving]
  - Ventricular dyskinesia [Recovering/Resolving]
  - Tachyarrhythmia [Recovering/Resolving]
  - Oedema [Recovering/Resolving]
  - Hyperkalaemia [Recovering/Resolving]
  - Blood creatine phosphokinase increased [Recovering/Resolving]

NARRATIVE: CASE EVENT DATE: 20220605
